FAERS Safety Report 15950211 (Version 1)
Quarter: 2019Q1

REPORT INFORMATION
  Report Type: Report from Study
  Country: None (occurrence: DE)
  Receive Date: 20190212
  Receipt Date: 20190212
  Transmission Date: 20190417
  Serious: Yes (Hospitalization)
  Sender: FDA-Public Use
  Company Number: DE-ABBVIE-17K-062-2005523-00

PATIENT
  Age: 59 Year
  Sex: Female

DRUGS (4)
  1. HUMIRA [Suspect]
     Active Substance: ADALIMUMAB
     Indication: RHEUMATOID ARTHRITIS
     Route: 058
     Dates: start: 201105
  2. MTX [Concomitant]
     Active Substance: METHOTREXATE SODIUM
     Route: 065
     Dates: start: 2010, end: 2011
  3. MTX [Concomitant]
     Active Substance: METHOTREXATE SODIUM
     Indication: PRODUCT USED FOR UNKNOWN INDICATION
     Dosage: BETWEEN NOV-2009 AND FEB-2010
     Route: 065
     Dates: start: 200911, end: 2010
  4. MTX [Concomitant]
     Active Substance: METHOTREXATE SODIUM
     Route: 065
     Dates: start: 2011

REACTIONS (3)
  - Joint destruction [Unknown]
  - Tendon dislocation [Not Recovered/Not Resolved]
  - Hand deformity [Unknown]

NARRATIVE: CASE EVENT DATE: 20170413
